FAERS Safety Report 10535349 (Version 6)
Quarter: 2015Q3

REPORT INFORMATION
  Report Type: Spontaneous
  Country: US (occurrence: US)
  Receive Date: 20141022
  Receipt Date: 20150917
  Transmission Date: 20151125
  Serious: Yes (Hospitalization, Other)
  Sender: FDA-Public Use
  Company Number: US-GLAXOSMITHKLINE-US2014GSK010152

PATIENT
  Age: 68 Year
  Sex: Male

DRUGS (7)
  1. SPIRIVA [Concomitant]
     Active Substance: TIOTROPIUM BROMIDE MONOHYDRATE
  2. ADVAIR HFA [Suspect]
     Active Substance: FLUTICASONE PROPIONATE\SALMETEROL XINAFOATE
     Indication: EMPHYSEMA
     Dosage: 250/50UG, U
     Route: 055
     Dates: start: 2001
  3. LISINOPRIL. [Concomitant]
     Active Substance: LISINOPRIL
  4. ASPIRIN. [Concomitant]
     Active Substance: ASPIRIN
  5. ADVAIR HFA [Suspect]
     Active Substance: FLUTICASONE PROPIONATE\SALMETEROL XINAFOATE
     Indication: BRONCHITIS
     Dosage: 500/50 UG, U
     Route: 055
     Dates: start: 2008
  6. ADVAIR HFA [Suspect]
     Active Substance: FLUTICASONE PROPIONATE\SALMETEROL XINAFOATE
     Indication: CHRONIC OBSTRUCTIVE PULMONARY DISEASE
     Dosage: 250/50 UG
     Route: 055
     Dates: start: 2009
  7. CARVEDILOL. [Concomitant]
     Active Substance: CARVEDILOL

REACTIONS (25)
  - Lung neoplasm malignant [Unknown]
  - Lung adenocarcinoma [Recovered/Resolved]
  - Meniere^s disease [Not Recovered/Not Resolved]
  - Coronary artery bypass [Unknown]
  - Concussion [Recovered/Resolved]
  - Blood glucose decreased [Recovered/Resolved]
  - Hypotension [Recovered/Resolved]
  - Dehydration [Recovered/Resolved]
  - Pneumonia [Unknown]
  - Gastrointestinal stoma complication [Recovered/Resolved]
  - Staphylococcal infection [Recovered/Resolved]
  - Dizziness [Not Recovered/Not Resolved]
  - Vertigo [Not Recovered/Not Resolved]
  - Colon operation [Recovered/Resolved]
  - Lung lobectomy [Recovered/Resolved]
  - Adenocarcinoma of colon [Recovered/Resolved]
  - Loss of consciousness [Recovered/Resolved]
  - Escherichia infection [Recovered/Resolved]
  - Cardiac operation [Unknown]
  - Hernia repair [Unknown]
  - Tooth loss [Not Recovered/Not Resolved]
  - Surgery [Unknown]
  - Fall [Recovered/Resolved]
  - Metastases to lung [Unknown]
  - Neoplasm malignant [Unknown]

NARRATIVE: CASE EVENT DATE: 20100410
